FAERS Safety Report 5209695-6 (Version None)
Quarter: 2007Q1

REPORT INFORMATION
  Report Type: 
  Country: None (occurrence: None)
  Receive Date: 20070116
  Receipt Date: 20070102
  Transmission Date: 20070707
  Serious: Yes (Other)
  Sender: FDA-Public Use
  Company Number: GB-PFIZER INC-2006044785

PATIENT
  Sex: Female
  Weight: 84 kg

DRUGS (2)
  1. LUSTRAL [Suspect]
     Indication: DEPRESSION
     Route: 048
     Dates: start: 20051209, end: 20060808
  2. CITALOPRAM HYDROBROMIDE [Concomitant]
     Route: 048

REACTIONS (3)
  - DRUG EXPOSURE DURING PREGNANCY [None]
  - POSTPARTUM DEPRESSION [None]
  - WEIGHT INCREASED [None]
